FAERS Safety Report 6895477-6 (Version None)
Quarter: 2010Q3

REPORT INFORMATION
  Report Type: 
  Country: None (occurrence: None)
  Receive Date: 20100802
  Receipt Date: 20100723
  Transmission Date: 20110219
  Serious: Yes (Hospitalization)
  Sender: FDA-Public Use
  Company Number: PHHY2010US48826

PATIENT
  Sex: Male

DRUGS (12)
  1. TOBI [Suspect]
     Indication: CYSTIC FIBROSIS
     Dosage: 300 MG, BID
  2. TOBI [Suspect]
     Indication: PSEUDOMONAS INFECTION
  3. AZITHROMYCIN [Concomitant]
     Indication: ANTIINFLAMMATORY THERAPY
     Dosage: TID
  4. ACTIGALL [Concomitant]
     Indication: LIVER DISORDER
     Dosage: 300 BID
  5. SPIRONOLACTONE [Concomitant]
     Dosage: 50 MG, QD
  6. PANCREATIC ENZYMES [Concomitant]
     Dosage: QID
  7. ALBUTEROL [Concomitant]
     Dosage: QID
  8. PRILOSEC [Concomitant]
     Dosage: QD
  9. MUCINEX [Concomitant]
  10. AZTREONAM [Concomitant]
     Indication: CYSTIC FIBROSIS
  11. AZTREONAM [Concomitant]
     Indication: PSEUDOMONAS INFECTION
  12. OXYGEN [Concomitant]

REACTIONS (9)
  - CYSTIC FIBROSIS [None]
  - DISEASE PROGRESSION [None]
  - FATIGUE [None]
  - HEPATIC CIRRHOSIS [None]
  - LIVER DISORDER [None]
  - LUNG DISORDER [None]
  - PORTAL HYPERTENSION [None]
  - PSEUDOMONAS INFECTION [None]
  - VARICES OESOPHAGEAL [None]
